FAERS Safety Report 12638078 (Version 1)
Quarter: 2016Q3

REPORT INFORMATION
  Report Type: Spontaneous
  Country: US (occurrence: US)
  Receive Date: 20160809
  Receipt Date: 20160809
  Transmission Date: 20161109
  Serious: No
  Sender: FDA-Public Use
  Company Number: US-SA-2016SA115854

PATIENT
  Age: 70 Year
  Sex: Female

DRUGS (6)
  1. PRALUENT [Suspect]
     Active Substance: ALIROCUMAB
     Route: 065
     Dates: start: 201512
  2. PRALUENT [Suspect]
     Active Substance: ALIROCUMAB
     Route: 065
     Dates: start: 201603, end: 201603
  3. PRALUENT [Suspect]
     Active Substance: ALIROCUMAB
     Route: 065
  4. ALIROCUMAB PREFILLED PEN [Concomitant]
     Active Substance: ALIROCUMAB
  5. ALIROCUMAB PREFILLED PEN [Concomitant]
     Active Substance: ALIROCUMAB
     Dates: start: 201512
  6. ALIROCUMAB PREFILLED PEN [Concomitant]
     Active Substance: ALIROCUMAB
     Dates: start: 201603, end: 201603

REACTIONS (2)
  - Influenza like illness [Not Recovered/Not Resolved]
  - Feeling abnormal [Not Recovered/Not Resolved]
